FAERS Safety Report 6993609-2 (Version None)
Quarter: 2010Q3

REPORT INFORMATION
  Report Type: 
  Country: None (occurrence: None)
  Receive Date: 20100917
  Receipt Date: 20100914
  Transmission Date: 20110219
  Serious: Yes (Death, Hospitalization, Other)
  Sender: FDA-Public Use
  Company Number: PHHO2009GB16278

PATIENT
  Sex: Female
  Weight: 59.1 kg

DRUGS (1)
  1. AFINITOR [Suspect]
     Indication: METASTATIC RENAL CELL CARCINOMA
     Dosage: 10 MG, QD
     Route: 048
     Dates: start: 20091016, end: 20091224

REACTIONS (30)
  - ABDOMINAL PAIN [None]
  - ABDOMINAL TENDERNESS [None]
  - CARDIO-RESPIRATORY ARREST [None]
  - CHRONIC OBSTRUCTIVE PULMONARY DISEASE [None]
  - COLD SWEAT [None]
  - COUGH [None]
  - CREPITATIONS [None]
  - DECREASED APPETITE [None]
  - DIARRHOEA [None]
  - DYSPNOEA EXERTIONAL [None]
  - FATIGUE [None]
  - GASTRIC ULCER [None]
  - HAEMOGLOBIN DECREASED [None]
  - HELICOBACTER INFECTION [None]
  - HYPERHIDROSIS [None]
  - HYPOTENSION [None]
  - INTESTINAL PERFORATION [None]
  - MALAISE [None]
  - MELAENA [None]
  - NAUSEA [None]
  - NEUTROPENIC SEPSIS [None]
  - OEDEMA [None]
  - OLIGURIA [None]
  - ORAL CANDIDIASIS [None]
  - ORAL PAIN [None]
  - PALLOR [None]
  - PNEUMONIA [None]
  - PYREXIA [None]
  - RENAL FAILURE CHRONIC [None]
  - SINUS TACHYCARDIA [None]
